FAERS Safety Report 10424730 (Version 1)
Quarter: 2014Q3

REPORT INFORMATION
  Report Type: Spontaneous
  Country: US (occurrence: None)
  Receive Date: 20140725
  Receipt Date: 20140725
  Transmission Date: 20150326
  Serious: No
  Sender: FDA-Public Use
  Company Number: AP356-00745-SPO-US

PATIENT
  Age: 77 Year
  Sex: Female
  Weight: 109 kg

DRUGS (2)
  1. SYNTHROID [Concomitant]
     Active Substance: LEVOTHYROXINE SODIUM
  2. BELVIQ [Suspect]
     Active Substance: LORCASERIN HYDROCHLORIDE
     Indication: DECREASED APPETITE
     Route: 048
     Dates: start: 20140501

REACTIONS (1)
  - Constipation [None]

NARRATIVE: CASE EVENT DATE: 201405
